FAERS Safety Report 13903435 (Version 3)
Quarter: 2018Q1

REPORT INFORMATION
  Report Type: Spontaneous
  Country: US (occurrence: US)
  Receive Date: 20170824
  Receipt Date: 20180123
  Transmission Date: 20180508
  Serious: Yes (Life-Threatening, Hospitalization)
  Sender: FDA-Public Use
  Company Number: US-PFIZER INC-2017365176

PATIENT
  Age: 70 Year
  Sex: Male
  Weight: 74.39 kg

DRUGS (1)
  1. CIPRO [Suspect]
     Active Substance: CIPROFLOXACIN HYDROCHLORIDE
     Dosage: UNK
     Route: 042

REACTIONS (2)
  - Drug hypersensitivity [Unknown]
  - Bacterial infection [Unknown]

NARRATIVE: CASE EVENT DATE: 2012
